FAERS Safety Report 21066168 (Version 1)
Quarter: 2022Q3

REPORT INFORMATION
  Report Type: Spontaneous
  Country: US (occurrence: US)
  Receive Date: 20220711
  Receipt Date: 20220711
  Transmission Date: 20221027
  Serious: No
  Sender: FDA-Public Use
  Company Number: US-INTRA-CELLULAR THERAPIES, INC.-2022ICT00607

PATIENT
  Age: 28 Year
  Sex: Male

DRUGS (3)
  1. CAPLYTA [Suspect]
     Active Substance: LUMATEPERONE
     Indication: Bipolar II disorder
     Dosage: 42 MG, 1X/DAY
     Route: 048
     Dates: start: 202205, end: 202205
  2. CAPLYTA [Suspect]
     Active Substance: LUMATEPERONE
     Indication: Major depression
  3. LITHIUM [Concomitant]
     Active Substance: LITHIUM
     Dosage: 450 MG, 1X/DAY

REACTIONS (2)
  - Heart rate decreased [Unknown]
  - Blood pressure decreased [Unknown]

NARRATIVE: CASE EVENT DATE: 20220501
